FAERS Safety Report 12469475 (Version 4)
Quarter: 2016Q3

REPORT INFORMATION
  Report Type: Spontaneous
  Country: US (occurrence: US)
  Receive Date: 20160615
  Receipt Date: 20160920
  Transmission Date: 20161109
  Serious: Yes (Death)
  Sender: FDA-Public Use
  Company Number: US-ACTELION-A-NJ2016-137548

PATIENT
  Age: 58 Year
  Sex: Male

DRUGS (2)
  1. VELETRI [Suspect]
     Active Substance: EPOPROSTENOL
     Indication: PULMONARY HYPERTENSION
     Dosage: 25 NG/KG, PER MIN
     Route: 042
     Dates: start: 20140319, end: 20160601
  2. OPSUMIT [Suspect]
     Active Substance: MACITENTAN
     Indication: PULMONARY HYPERTENSION
     Route: 048

REACTIONS (3)
  - Hypoxia [Fatal]
  - Pulmonary fibrosis [Fatal]
  - Respiratory failure [Fatal]
